FAERS Safety Report 5258574-7 (Version None)
Quarter: 2007Q1

REPORT INFORMATION
  Report Type: 
  Country: None (occurrence: None)
  Receive Date: 20070308
  Receipt Date: 20070227
  Transmission Date: 20070707
  Serious: Yes (Death, Hospitalization)
  Sender: FDA-Public Use
  Company Number: JP-AVENTIS-200710964EU

PATIENT
  Age: 69 Year
  Sex: Male

DRUGS (6)
  1. LASIX [Suspect]
     Route: 048
     Dates: start: 20060930, end: 20061030
  2. TICLOPIDINE HCL [Suspect]
     Indication: ACUTE MYOCARDIAL INFARCTION
     Route: 048
     Dates: start: 20060930, end: 20061030
  3. ARTIST [Suspect]
     Indication: CORONARY ARTERIAL STENT INSERTION
     Route: 048
     Dates: start: 20060930, end: 20061030
  4. ASPIRIN [Suspect]
     Route: 048
     Dates: start: 20060930, end: 20061030
  5. ALLOPURINOL [Suspect]
     Route: 047
     Dates: start: 20060930, end: 20061030
  6. PLETAL [Suspect]
     Route: 048
     Dates: start: 20061101, end: 20061113

REACTIONS (4)
  - AGRANULOCYTOSIS [None]
  - BONE MARROW FAILURE [None]
  - HEPATITIS CHOLESTATIC [None]
  - SEPSIS [None]
